FAERS Safety Report 15542113 (Version 3)
Quarter: 2018Q4

REPORT INFORMATION
  Report Type: Report from Study
  Country: PE (occurrence: PE)
  Receive Date: 20181023
  Receipt Date: 20181217
  Transmission Date: 20190205
  Serious: No
  Sender: FDA-Public Use
  Company Number: PE-SA-2018SA283181

PATIENT
  Age: 19 Day
  Sex: Female
  Weight: 4.81 kg

DRUGS (7)
  1. INSULIN GLULISINE [Suspect]
     Active Substance: INSULIN GLULISINE
     Dosage: 55 U QD (IN 3 DOSES, 15 U IN THE MORNING, 20 U IN THE AFTERNOON AND 45 U IN THE NIGHT QD
     Route: 064
     Dates: start: 2010
  2. INSULIN GLULISINE [Suspect]
     Active Substance: INSULIN GLULISINE
     Dosage: 6U IN THE MORNINGS, 10U IN THE AFTERNOON AND 8U IN THE NIGHTS
     Route: 064
  3. INSULIN GLARGINE [Suspect]
     Active Substance: INSULIN GLARGINE
     Dosage: 100 U, QD
     Route: 064
     Dates: start: 2010
  4. INSULIN GLARGINE [Suspect]
     Active Substance: INSULIN GLARGINE
     Dosage: 15 U, QD
     Route: 064
  5. PREVINE D [Concomitant]
     Dosage: UNK UNK, QD
     Route: 064
     Dates: start: 201808, end: 201808
  6. GESTAFER [Concomitant]
     Dosage: UNK UNK, BID
     Route: 064
     Dates: start: 201712, end: 201809
  7. GESTAGRAMIN [Concomitant]
     Dosage: 10 MG, BID
     Route: 048
     Dates: start: 201803, end: 201807

REACTIONS (1)
  - Foetal exposure during pregnancy [Unknown]
